FAERS Safety Report 7813735-5 (Version None)
Quarter: 2011Q4

REPORT INFORMATION
  Report Type: 
  Country: None (occurrence: None)
  Receive Date: 20111011
  Receipt Date: 20110928
  Transmission Date: 20120403
  Serious: Yes (Hospitalization, Other)
  Sender: FDA-Public Use
  Company Number: 2009SP017431

PATIENT
  Age: 31 Year
  Sex: Female

DRUGS (2)
  1. HYDROCODONE BITARTRATE AND ACETAMINOPHEN [Concomitant]
  2. NUVARING [Suspect]
     Indication: CONTRACEPTION
     Dosage: QM, VAG
     Route: 067
     Dates: start: 20051001, end: 20060901

REACTIONS (18)
  - COAGULOPATHY [None]
  - NAIL AVULSION [None]
  - SEBORRHOEIC DERMATITIS [None]
  - ACTIVITIES OF DAILY LIVING IMPAIRED [None]
  - HYSTERECTOMY [None]
  - LIPOSARCOMA [None]
  - IMPAIRED HEALING [None]
  - PULMONARY EMBOLISM [None]
  - UTERINE PROLAPSE [None]
  - ACCIDENT [None]
  - VENOUS OCCLUSION [None]
  - MENORRHAGIA [None]
  - LIPOMA [None]
  - HEADACHE [None]
  - UTERINE SPASM [None]
  - PLANTAR FASCIITIS [None]
  - PARONYCHIA [None]
  - PAIN [None]
